FAERS Safety Report 24083892 (Version 1)
Quarter: 2024Q3

REPORT INFORMATION
  Report Type: Spontaneous
  Country: CN (occurrence: CN)
  Receive Date: 20240712
  Receipt Date: 20240712
  Transmission Date: 20241016
  Serious: Yes (Other)
  Sender: ABBVIE
  Company Number: CN-ABBVIE-5833926

PATIENT
  Age: 72 Year
  Sex: Male

DRUGS (3)
  1. LOPINAVIR\RITONAVIR [Suspect]
     Active Substance: LOPINAVIR\RITONAVIR
     Indication: Acquired immunodeficiency syndrome
     Dosage: ALUVIA 200/50
     Route: 048
     Dates: start: 20240520, end: 20240617
  2. ALPRAZOLAM [Concomitant]
     Active Substance: ALPRAZOLAM
     Indication: Product used for unknown indication
     Dosage: 0.4 MILLIGRAM
     Route: 048
     Dates: start: 20240325, end: 20240708
  3. TENOFOVIR DISOPROXIL FUMARATE [Concomitant]
     Active Substance: TENOFOVIR DISOPROXIL FUMARATE
     Indication: Acquired immunodeficiency syndrome
     Dosage: 0.3 GRAM
     Route: 048
     Dates: start: 20240520, end: 20240708

REACTIONS (1)
  - Transaminases abnormal [Recovering/Resolving]

NARRATIVE: CASE EVENT DATE: 20240617
